FAERS Safety Report 8362043-5 (Version None)
Quarter: 2012Q2

REPORT INFORMATION
  Report Type: 
  Country: None (occurrence: None)
  Receive Date: 20120515
  Receipt Date: 20120430
  Transmission Date: 20120825
  Serious: Yes (Hospitalization)
  Sender: FDA-Public Use
  Company Number: US-SPECTRUM PHARMACEUTICALS, INC.-12-F-US-00074

PATIENT
  Age: 55 Year
  Sex: Male

DRUGS (4)
  1. LEUCOVORIN CALCIUM [Suspect]
     Indication: GASTRIC CANCER STAGE I
     Dosage: UNK
     Route: 065
  2. FLUOROURACIL [Suspect]
     Indication: GASTRIC CANCER STAGE I
     Dosage: INFUSION PUMP FOR AN ADDITIONAL 24 HRS.
     Route: 042
  3. FLUOROURACIL [Suspect]
     Dosage: UNK
     Route: 065
  4. OXALIPLATIN [Suspect]
     Indication: GASTRIC CANCER STAGE I
     Dosage: UNK
     Route: 065

REACTIONS (10)
  - ELECTROCARDIOGRAM ST SEGMENT DEPRESSION [None]
  - CHEST DISCOMFORT [None]
  - NAUSEA [None]
  - HYPERHIDROSIS [None]
  - TROPONIN I INCREASED [None]
  - LEFT VENTRICULAR DYSFUNCTION [None]
  - ELECTROCARDIOGRAM T WAVE INVERSION [None]
  - CARDIOVASCULAR DISORDER [None]
  - ACUTE CORONARY SYNDROME [None]
  - CORONARY ARTERY OCCLUSION [None]
